FAERS Safety Report 8341842 (Version 4)
Quarter: 2013Q1

REPORT INFORMATION
  Report Type: Report from Study
  Country: DE (occurrence: DE)
  Receive Date: 20120118
  Receipt Date: 20130211
  Transmission Date: 20140127
  Serious: Yes (Other)
  Sender: FDA-Public Use
  Company Number: DE-UCBSA-048877

PATIENT
  Sex: Female

DRUGS (4)
  1. CIMZIA [Suspect]
     Indication: RHEUMATOID ARTHRITIS
     Route: 058
     Dates: start: 20100908, end: 20110910
  2. FOLCUR [Concomitant]
     Indication: DRUG TOXICITY PROPHYLAXIS
     Dosage: 5 MG EVERY WEEK
     Dates: start: 20090921
  3. GABAPENTIN [Concomitant]
     Dates: start: 20110523
  4. METEX [Concomitant]
     Indication: RHEUMATOID ARTHRITIS
     Route: 058
     Dates: start: 20100108

REACTIONS (1)
  - Psoriasis [Not Recovered/Not Resolved]
